FAERS Safety Report 16376770 (Version 2)
Quarter: 2020Q3

REPORT INFORMATION
  Report Type: Spontaneous
  Country: US (occurrence: US)
  Receive Date: 20190531
  Receipt Date: 20200925
  Transmission Date: 20201102
  Serious: Yes (Other)
  Sender: FDA-Public Use
  Company Number: US-BIOGEN-2019BI00745257

PATIENT
  Sex: Female

DRUGS (2)
  1. OXYCODONE [Concomitant]
     Active Substance: OXYCODONE
     Indication: PRODUCT USED FOR UNKNOWN INDICATION
     Route: 065
  2. TECFIDERA [Suspect]
     Active Substance: DIMETHYL FUMARATE
     Indication: MULTIPLE SCLEROSIS
     Route: 048
     Dates: start: 20140814

REACTIONS (8)
  - Osteoarthritis [Unknown]
  - Loss of consciousness [Unknown]
  - Pain [Unknown]
  - Infection [Unknown]
  - Fall [Recovered/Resolved]
  - Blood pressure decreased [Unknown]
  - Weight bearing difficulty [Unknown]
  - Rib fracture [Unknown]
